FAERS Safety Report 13359653 (Version 1)
Quarter: 2017Q1

REPORT INFORMATION
  Report Type: Spontaneous
  Country: US (occurrence: US)
  Receive Date: 20170322
  Receipt Date: 20170322
  Transmission Date: 20170429
  Serious: No
  Sender: FDA-Public Use
  Company Number: US-ELI_LILLY_AND_COMPANY-US201608004860

PATIENT
  Age: 37 Year
  Sex: Male

DRUGS (2)
  1. CYMBALTA [Suspect]
     Active Substance: DULOXETINE HYDROCHLORIDE
     Dosage: 20 MG, EVERY OTHER DAY
     Route: 048
  2. CYMBALTA [Suspect]
     Active Substance: DULOXETINE HYDROCHLORIDE
     Indication: MAJOR DEPRESSION
     Dosage: 20 MG, QD
     Route: 048

REACTIONS (19)
  - Paraesthesia [Unknown]
  - Dysphoria [Unknown]
  - Agitation [Unknown]
  - Hyperhidrosis [Unknown]
  - Irritability [Unknown]
  - Blood bilirubin increased [Unknown]
  - Nausea [Unknown]
  - Drug withdrawal syndrome [Unknown]
  - Vertigo [Unknown]
  - Anxiety [Unknown]
  - Insomnia [Unknown]
  - Aspartate aminotransferase increased [Unknown]
  - Headache [Unknown]
  - Tremor [Unknown]
  - Alanine aminotransferase increased [Unknown]
  - Dizziness [Unknown]
  - Lethargy [Unknown]
  - Sexual dysfunction [Unknown]
  - Fatigue [Unknown]

NARRATIVE: CASE EVENT DATE: 20080304
